FAERS Safety Report 8440089-6 (Version None)
Quarter: 2012Q2

REPORT INFORMATION
  Report Type: 
  Country: None (occurrence: None)
  Receive Date: 20120615
  Receipt Date: 20120608
  Transmission Date: 20120825
  Serious: Yes (Hospitalization, Other)
  Sender: FDA-Public Use
  Company Number: CA-ELI_LILLY_AND_COMPANY-CA201206003125

PATIENT
  Age: 85 Year
  Sex: Male
  Weight: 43.537 kg

DRUGS (1)
  1. FORTEO [Suspect]
     Indication: OSTEOPOROSIS
     Dosage: 20 UG, QD
     Route: 058
     Dates: start: 20111011, end: 20120402

REACTIONS (6)
  - RASH [None]
  - ASTHENIA [None]
  - MOBILITY DECREASED [None]
  - PRURITUS [None]
  - WEIGHT DECREASED [None]
  - PNEUMONIA [None]
